FAERS Safety Report 23889046 (Version 1)
Quarter: 2024Q2

REPORT INFORMATION
  Report Type: Spontaneous
  Country: US (occurrence: US)
  Receive Date: 20240523
  Receipt Date: 20240523
  Transmission Date: 20240716
  Serious: Yes (Hospitalization)
  Sender: FDA-Public Use
  Company Number: US-INCYTE CORPORATION-2024IN005299

PATIENT

DRUGS (1)
  1. JAKAFI [Suspect]
     Active Substance: RUXOLITINIB
     Indication: Anaemia megaloblastic
     Dosage: UNK UNK, BID
     Route: 065

REACTIONS (3)
  - Renal disorder [Unknown]
  - Localised infection [Unknown]
  - Off label use [Unknown]
